FAERS Safety Report 8974018 (Version 1)
Quarter: 2012Q4

REPORT INFORMATION
  Report Type: 
  Country: US (occurrence: US)
  Receive Date: 20121218
  Receipt Date: 20121218
  Transmission Date: 20130627
  Serious: Yes (Other)
  Sender: FDA-Public Use
  Company Number: US-BRISTOL-MYERS SQUIBB COMPANY-16844755

PATIENT
  Age: 49 Year
  Sex: Male
  Weight: 83.9 kg

DRUGS (9)
  1. ABILIFY TABS 5 MG [Suspect]
     Indication: DEPRESSION
     Dosage: 10mg on 16Aug12
     Route: 048
     Dates: start: 201206
  2. SOMA [Concomitant]
  3. PAXIL [Concomitant]
  4. MULTIVITAMIN [Concomitant]
  5. TRAMADOL [Concomitant]
  6. MECLIZINE [Concomitant]
  7. PERCOCET [Concomitant]
  8. DOXAZOSIN [Concomitant]
  9. PAROXETINE [Concomitant]

REACTIONS (2)
  - Suicidal ideation [Unknown]
  - Depression [Unknown]
